FAERS Safety Report 13711139 (Version 2)
Quarter: 2017Q3

REPORT INFORMATION
  Report Type: Spontaneous
  Country: US (occurrence: US)
  Receive Date: 20170703
  Receipt Date: 20170710
  Transmission Date: 20171127
  Serious: Yes (Hospitalization)
  Sender: FDA-Public Use
  Company Number: US-ELI_LILLY_AND_COMPANY-US201706009286

PATIENT
  Sex: Female

DRUGS (4)
  1. FORTEO [Suspect]
     Active Substance: TERIPARATIDE
     Indication: OSTEOPOROSIS
     Dosage: 20 UG, UNKNOWN
     Route: 058
     Dates: end: 2014
  2. GABAPENTIN. [Concomitant]
     Active Substance: GABAPENTIN
     Indication: ANTIINFLAMMATORY THERAPY
  3. METFORMIN [Concomitant]
     Active Substance: METFORMIN HYDROCHLORIDE
     Indication: TYPE 2 DIABETES MELLITUS
  4. TRULICITY [Suspect]
     Active Substance: DULAGLUTIDE
     Indication: TYPE 2 DIABETES MELLITUS
     Dosage: 0.75 MG, UNK
     Route: 058

REACTIONS (9)
  - Undifferentiated connective tissue disease [Recovering/Resolving]
  - Blood pressure fluctuation [Recovered/Resolved]
  - Intervertebral disc protrusion [Unknown]
  - Blood glucose increased [Unknown]
  - Intervertebral disc protrusion [Recovering/Resolving]
  - Pain [Unknown]
  - Limb discomfort [Unknown]
  - Contusion [Not Recovered/Not Resolved]
  - Peripheral swelling [Not Recovered/Not Resolved]

NARRATIVE: CASE EVENT DATE: 2015
